FAERS Safety Report 23512964 (Version 2)
Quarter: 2024Q1

REPORT INFORMATION
  Report Type: Spontaneous
  Country: DE (occurrence: DE)
  Receive Date: 20240212
  Receipt Date: 20240326
  Transmission Date: 20240410
  Serious: Yes (Other)
  Sender: FDA-Public Use
  Company Number: DE-002147023-NVSC2024DE028560

PATIENT
  Sex: Male

DRUGS (3)
  1. SANDOSTATIN LAR DEPOT [Suspect]
     Active Substance: OCTREOTIDE ACETATE
     Indication: Product used for unknown indication
     Dosage: UNK MONTHY
     Route: 065
     Dates: start: 2022
  2. SANDOSTATIN LAR DEPOT [Suspect]
     Active Substance: OCTREOTIDE ACETATE
     Dosage: UNK
     Route: 065
     Dates: start: 20240201, end: 20240201
  3. SANDOSTATIN LAR DEPOT [Suspect]
     Active Substance: OCTREOTIDE ACETATE
     Dosage: UNK MONTHLY
     Route: 065

REACTIONS (5)
  - Transient ischaemic attack [Unknown]
  - Loss of consciousness [Unknown]
  - Dizziness [Unknown]
  - Migraine with aura [Unknown]
  - Product storage error [Unknown]

NARRATIVE: CASE EVENT DATE: 20240201
